FAERS Safety Report 13464674 (Version 1)
Quarter: 2017Q2

REPORT INFORMATION
  Report Type: Spontaneous
  Country: US (occurrence: US)
  Receive Date: 20170420
  Receipt Date: 20170420
  Transmission Date: 20170830
  Serious: Yes (Hospitalization, Other)
  Sender: FDA-Public Use
  Company Number: US-ROCHE-706917

PATIENT
  Age: 14 Year
  Sex: Male
  Weight: 71.2 kg

DRUGS (11)
  1. ACCUTANE [Suspect]
     Active Substance: ISOTRETINOIN
     Route: 065
     Dates: start: 20011022, end: 200201
  2. BROMPHENIRAMINE MALEATE\PSEUDOEPHEDRINE HYDROCHLORIDE [Concomitant]
     Active Substance: BROMPHENIRAMINE MALEATE\PSEUDOEPHEDRINE HYDROCHLORIDE
     Route: 065
  3. ALLEGRA [Concomitant]
     Active Substance: FEXOFENADINE HYDROCHLORIDE
     Route: 065
  4. TYLENOL [Concomitant]
     Active Substance: ACETAMINOPHEN
     Route: 065
  5. AMNESTEEM [Suspect]
     Active Substance: ISOTRETINOIN
     Indication: ACNE
     Route: 048
     Dates: start: 20051122, end: 20060227
  6. FLONASE [Concomitant]
     Active Substance: FLUTICASONE PROPIONATE
     Route: 065
  7. PATANOL [Concomitant]
     Active Substance: OLOPATADINE HYDROCHLORIDE
     Route: 065
  8. ACCUTANE [Suspect]
     Active Substance: ISOTRETINOIN
     Indication: ACNE
     Route: 065
  9. AMNESTEEM [Suspect]
     Active Substance: ISOTRETINOIN
     Route: 048
     Dates: start: 20060308, end: 20060430
  10. PERCOCET [Concomitant]
     Active Substance: ACETAMINOPHEN\OXYCODONE HYDROCHLORIDE
     Route: 065
  11. LEVAQUIN [Concomitant]
     Active Substance: LEVOFLOXACIN
     Route: 065

REACTIONS (11)
  - Fatigue [Unknown]
  - Depression [Unknown]
  - Blood triglycerides increased [Recovered/Resolved]
  - Inflammatory bowel disease [Unknown]
  - Myalgia [Unknown]
  - Dry skin [Unknown]
  - Arthralgia [Unknown]
  - Disturbance in attention [Unknown]
  - Crohn^s disease [Unknown]
  - Amnesia [Unknown]
  - Eczema [Unknown]

NARRATIVE: CASE EVENT DATE: 20010820
